FAERS Safety Report 8274962-9 (Version None)
Quarter: 2012Q2

REPORT INFORMATION
  Report Type: 
  Country: None (occurrence: None)
  Receive Date: 20120409
  Receipt Date: 20120403
  Transmission Date: 20120825
  Serious: Yes (Other)
  Sender: FDA-Public Use
  Company Number: GER/UKI/12/0023756

PATIENT
  Age: 40 Year
  Sex: Female
  Weight: 63 kg

DRUGS (4)
  1. OLANZAPINE [Suspect]
     Indication: MAJOR DEPRESSION
     Dosage: 5 MG, ORAL
  2. QUETIAPINE FUMARATE [Concomitant]
  3. FLUOXETINE [Concomitant]
  4. LORAZEPAM [Concomitant]

REACTIONS (5)
  - JOINT SWELLING [None]
  - ARTHRALGIA [None]
  - FEELING HOT [None]
  - ANAEMIA [None]
  - CALCIUM DEFICIENCY [None]
